FAERS Safety Report 14610975 (Version 1)
Quarter: 2018Q1

REPORT INFORMATION
  Report Type: Spontaneous
  Country: GB (occurrence: GB)
  Receive Date: 20180308
  Receipt Date: 20180308
  Transmission Date: 20180509
  Serious: Yes (Hospitalization)
  Sender: FDA-Public Use
  Company Number: GB-KRKA, D.D., NOVO MESTO-2043208

PATIENT
  Age: 86 Year
  Sex: Female

DRUGS (10)
  1. CETIRIZINE [Suspect]
     Active Substance: CETIRIZINE HYDROCHLORIDE
  2. LANSOPRAZOLE. [Suspect]
     Active Substance: LANSOPRAZOLE
  3. CANDESARTAN CILEXETIL. [Suspect]
     Active Substance: CANDESARTAN CILEXETIL
  4. BISOPROLOL FUMARATE. [Suspect]
     Active Substance: BISOPROLOL FUMARATE
  5. LINAGLIPTIN [Suspect]
     Active Substance: LINAGLIPTIN
  6. LEVOTHYROXINE SODIUM. [Suspect]
     Active Substance: LEVOTHYROXINE SODIUM
  7. ISOSORBIDE. [Suspect]
     Active Substance: ISOSORBIDE
  8. DIGOXIN. [Suspect]
     Active Substance: DIGOXIN
  9. APIXABAN [Suspect]
     Active Substance: APIXABAN
  10. SIMVASTATIN. [Suspect]
     Active Substance: SIMVASTATIN

REACTIONS (1)
  - Subarachnoid haemorrhage [Recovered/Resolved with Sequelae]
